FAERS Safety Report 8028244-0 (Version None)
Quarter: 2012Q1

REPORT INFORMATION
  Report Type: 
  Country: None (occurrence: None)
  Receive Date: 20120106
  Receipt Date: 20120105
  Transmission Date: 20120608
  Serious: Yes (Other)
  Sender: FDA-Public Use
  Company Number: US-ROCHE-1027729

PATIENT
  Sex: Male

DRUGS (3)
  1. ACCUTANE [Suspect]
     Dates: start: 19970814, end: 19971001
  2. ACCUTANE [Suspect]
     Indication: PRODUCT USED FOR UNKNOWN INDICATION
     Dates: start: 19800101, end: 19820101
  3. ACCUTANE [Suspect]
     Dates: start: 19910101, end: 19920101

REACTIONS (1)
  - IRRITABLE BOWEL SYNDROME [None]
